FAERS Safety Report 20098638 (Version 1)
Quarter: 2021Q4

REPORT INFORMATION
  Report Type: Spontaneous
  Country: JP (occurrence: JP)
  Receive Date: 20211122
  Receipt Date: 20211122
  Transmission Date: 20220304
  Serious: Yes (Hospitalization, Other)
  Sender: FDA-Public Use
  Company Number: JP-ferring-EVA202101747FERRINGPH

PATIENT
  Age: 4 Year
  Sex: Male

DRUGS (2)
  1. DESMOPRESSIN ACETATE [Suspect]
     Active Substance: DESMOPRESSIN ACETATE
     Indication: Inappropriate antidiuretic hormone secretion
     Dosage: UNK
     Route: 065
  2. SOMATROPIN [Concomitant]
     Active Substance: SOMATROPIN
     Route: 065

REACTIONS (10)
  - Brain oedema [Unknown]
  - Oedema [Unknown]
  - Mydriasis [Unknown]
  - Hypernatraemia [Recovered/Resolved]
  - Hypernatraemia [Recovered/Resolved]
  - Hyponatraemia [Recovered/Resolved]
  - Hyponatraemia [Unknown]
  - Treatment noncompliance [Unknown]
  - Contraindicated product prescribed [Unknown]
  - Off label use [Unknown]
